FAERS Safety Report 12419001 (Version 1)
Quarter: 2016Q2

REPORT INFORMATION
  Report Type: Spontaneous
  Country: AU (occurrence: AU)
  Receive Date: 20160531
  Receipt Date: 20160531
  Transmission Date: 20160815
  Serious: Yes (Death, Other)
  Sender: FDA-Public Use
  Company Number: AU-LUPIN PHARMACEUTICALS INC.-2016-02150

PATIENT
  Age: 43 Year
  Sex: Female

DRUGS (18)
  1. ENDEP [Interacting]
     Active Substance: AMITRIPTYLINE HYDROCHLORIDE
     Indication: ANXIETY
     Route: 065
     Dates: start: 20130402
  2. OXAZEPAM. [Interacting]
     Active Substance: OXAZEPAM
     Indication: INSOMNIA
     Route: 065
     Dates: end: 2012
  3. LYRICA [Interacting]
     Active Substance: PREGABALIN
     Indication: PAIN MANAGEMENT
     Route: 065
     Dates: start: 2007
  4. METHADONE [Interacting]
     Active Substance: METHADONE HYDROCHLORIDE
     Route: 065
     Dates: start: 201006
  5. VALIUM [Interacting]
     Active Substance: DIAZEPAM
     Indication: DRUG DEPENDENCE
     Route: 065
  6. METHADONE [Interacting]
     Active Substance: METHADONE HYDROCHLORIDE
     Route: 065
     Dates: start: 20130319
  7. METHADONE [Interacting]
     Active Substance: METHADONE HYDROCHLORIDE
     Indication: INSOMNIA
     Route: 065
     Dates: start: 200001
  8. ACETAMINOPHEN AND CODEINE [Concomitant]
     Active Substance: ACETAMINOPHEN\CODEINE PHOSPHATE
     Indication: BACK PAIN
     Route: 065
     Dates: start: 20130319
  9. DIAZEPAM. [Interacting]
     Active Substance: DIAZEPAM
     Indication: INSOMNIA
     Route: 065
     Dates: start: 20130319
  10. PARACETAMOL [Interacting]
     Active Substance: ACETAMINOPHEN
     Indication: PRODUCT USED FOR UNKNOWN INDICATION
     Route: 065
  11. LYRICA [Interacting]
     Active Substance: PREGABALIN
     Indication: INTERVERTEBRAL DISC PROTRUSION
     Route: 065
     Dates: start: 20130402
  12. ZOPICLONE [Concomitant]
     Active Substance: ZOPICLONE
     Indication: INSOMNIA
     Route: 065
     Dates: start: 20130402
  13. ZOPICLONE [Concomitant]
     Active Substance: ZOPICLONE
     Indication: ANXIETY
     Route: 065
  14. ENDEP [Interacting]
     Active Substance: AMITRIPTYLINE HYDROCHLORIDE
     Indication: DEPRESSION
     Route: 065
     Dates: start: 2007
  15. OXAZEPAM. [Interacting]
     Active Substance: OXAZEPAM
     Indication: ANXIETY
     Dosage: 30 TO 60 MG
     Route: 065
     Dates: start: 20130319
  16. DIAZEPAM. [Interacting]
     Active Substance: DIAZEPAM
     Indication: ANXIETY
     Route: 065
     Dates: end: 2012
  17. DULOXETINE. [Suspect]
     Active Substance: DULOXETINE
     Indication: DEPRESSION
     Route: 065
     Dates: start: 20130319
  18. METHADONE [Interacting]
     Active Substance: METHADONE HYDROCHLORIDE
     Indication: ANXIETY
     Route: 065
     Dates: start: 1995, end: 1997

REACTIONS (5)
  - Drug interaction [Unknown]
  - Tooth infection [Unknown]
  - Toxicity to various agents [Fatal]
  - Contraindicated drug administered [Unknown]
  - Overdose [Fatal]

NARRATIVE: CASE EVENT DATE: 20130402
